FAERS Safety Report 15440084 (Version 1)
Quarter: 2018Q3

REPORT INFORMATION
  Report Type: Report from Study
  Country: NZ (occurrence: NZ)
  Receive Date: 20180928
  Receipt Date: 20180928
  Transmission Date: 20181010
  Serious: Yes (Other)
  Sender: FDA-Public Use
  Company Number: NZ-MYLANLABS-2017M1042290

PATIENT
  Age: 61 Year
  Sex: Male

DRUGS (1)
  1. CLOZARIL [Suspect]
     Active Substance: CLOZAPINE
     Indication: SCHIZOPHRENIA
     Dosage: UNK
     Route: 048
     Dates: start: 20050625

REACTIONS (8)
  - Haemoglobin decreased [Not Recovered/Not Resolved]
  - White blood cell count decreased [Unknown]
  - Haematocrit decreased [Recovering/Resolving]
  - White blood cell count increased [Not Recovered/Not Resolved]
  - Mean cell haemoglobin decreased [Unknown]
  - Lymphocyte count decreased [Not Recovered/Not Resolved]
  - Red cell distribution width increased [Unknown]
  - Neutrophil count increased [Not Recovered/Not Resolved]

NARRATIVE: CASE EVENT DATE: 20151108
